FAERS Safety Report 6906596-X (Version None)
Quarter: 2010Q3

REPORT INFORMATION
  Report Type: 
  Country: None (occurrence: None)
  Receive Date: 20100804
  Receipt Date: 20100727
  Transmission Date: 20110219
  Serious: Yes (Other)
  Sender: FDA-Public Use
  Company Number: US-BAYER-201029262NA

PATIENT
  Age: 53 Year
  Sex: Female

DRUGS (1)
  1. CLIMARA PRO [Suspect]
     Indication: HOT FLUSH
     Dosage: 0.045MG/0.015MG/DAY
     Route: 062
     Dates: start: 20100301, end: 20100702

REACTIONS (2)
  - TEMPERATURE DIFFERENCE OF EXTREMITIES [None]
  - THROMBOSIS [None]
